FAERS Safety Report 4354135-2 (Version None)
Quarter: 2004Q2

REPORT INFORMATION
  Report Type: 
  Country: None (occurrence: None)
  Receive Date: 20040505
  Receipt Date: 20040505
  Transmission Date: 20050107
  Serious: Yes (Hospitalization)
  Sender: FDA-Public Use
  Company Number: None

PATIENT
  Age: 20 Year
  Sex: Male

DRUGS (3)
  1. FLUDARABINE PHOSPHATE [Suspect]
     Indication: CHRONIC MYELOID LEUKAEMIA
     Dosage: 30 MG/M2 X 4 DAYS
     Dates: start: 20031110, end: 20031113
  2. BUSULFAN [Suspect]
     Indication: CHRONIC MYELOID LEUKAEMIA
     Dosage: 3.2 MG/KG X 4 DAYS
     Dates: start: 20031114, end: 20031117
  3. ATG [Concomitant]

REACTIONS (3)
  - BONE MARROW DEPRESSION [None]
  - BONE MARROW TRANSPLANT [None]
  - BONE MARROW TRANSPLANT REJECTION [None]
